FAERS Safety Report 8062458-9 (Version None)
Quarter: 2012Q1

REPORT INFORMATION
  Report Type: 
  Country: None (occurrence: None)
  Receive Date: 20120123
  Receipt Date: 20120111
  Transmission Date: 20120608
  Serious: Yes (Other)
  Sender: FDA-Public Use
  Company Number: US-BAYER-201033430NA

PATIENT
  Age: 25 Year
  Sex: Female

DRUGS (2)
  1. YASMIN [Suspect]
     Dosage: UNK
     Dates: start: 20061201, end: 20090801
  2. DROSPIRENONE AND ETHINYL ESTRADIOL [Suspect]
     Dosage: UNK UNK, UNK
     Route: 048
     Dates: start: 20061201, end: 20090801

REACTIONS (11)
  - ANXIETY [None]
  - SCAR [None]
  - CHOLELITHIASIS [None]
  - FLATULENCE [None]
  - DYSPEPSIA [None]
  - CONSTIPATION [None]
  - PAIN IN EXTREMITY [None]
  - DEPRESSION [None]
  - ABDOMINAL DISTENSION [None]
  - DIARRHOEA [None]
  - FREQUENT BOWEL MOVEMENTS [None]
